FAERS Safety Report 24390793 (Version 2)
Quarter: 2024Q4

REPORT INFORMATION
  Report Type: Spontaneous
  Country: CZ (occurrence: CZ)
  Receive Date: 20241003
  Receipt Date: 20241126
  Transmission Date: 20250114
  Serious: Yes (Other)
  Sender: ROCHE
  Company Number: CZ-ROCHE-10000090344

PATIENT
  Age: 53 Year
  Sex: Male

DRUGS (4)
  1. OCREVUS [Suspect]
     Active Substance: OCRELIZUMAB
     Indication: Relapsing-remitting multiple sclerosis
     Dosage: LAST DOSE OF OCR IN 2023 (TOTAL OF 9 DOSES)
     Route: 065
     Dates: start: 20190918, end: 20230906
  2. OCREVUS [Suspect]
     Active Substance: OCRELIZUMAB
     Dosage: LAST DOSE OF OCR IN 2023 (TOTAL OF 9 DOSES)
     Route: 065
  3. TAMSULOSIN [Concomitant]
     Active Substance: TAMSULOSIN
  4. HERPESINE [Concomitant]

REACTIONS (19)
  - Pyrexia [Recovered/Resolved]
  - Body temperature increased [Unknown]
  - Dyspepsia [Recovered/Resolved]
  - Vomiting [Recovered/Resolved]
  - Weight decreased [Recovered/Resolved]
  - Nervous system disorder [Recovered/Resolved]
  - Oesophageal infection [Recovered/Resolved]
  - Lymphadenopathy [Unknown]
  - Electroencephalogram abnormal [Recovered/Resolved]
  - Central nervous system inflammation [Unknown]
  - Cognitive disorder [Recovered/Resolved]
  - Sepsis [Unknown]
  - Nervous system disorder [Unknown]
  - Sepsis [Recovered/Resolved]
  - Pyrexia [Recovered/Resolved]
  - Dyspepsia [Unknown]
  - Vomiting [Unknown]
  - Weight decreased [Unknown]
  - Lymphadenopathy [Recovering/Resolving]

NARRATIVE: CASE EVENT DATE: 20240101
